FAERS Safety Report 9319289 (Version 1)
Quarter: 2013Q2

REPORT INFORMATION
  Report Type: Other
  Country: IT (occurrence: IT)
  Receive Date: 20130530
  Receipt Date: 20130530
  Transmission Date: 20140414
  Serious: Yes (Hospitalization)
  Sender: FDA-Public Use
  Company Number: IT-ACTAVIS-2013-10011

PATIENT
  Age: 61 Year
  Sex: Female

DRUGS (2)
  1. METFORMIN HYDROCHLORIDE (UNKNOWN) [Suspect]
     Indication: DIABETES MELLITUS
     Dosage: 1500 MG, DAILY
     Route: 048
     Dates: start: 20050101, end: 20130202
  2. DICLOFENAC (UNKNOWN) [Suspect]
     Indication: BACK PAIN
     Dosage: 2 DF, DAILY
     Route: 030
     Dates: start: 20130101, end: 20130202

REACTIONS (1)
  - Metabolic acidosis [Recovering/Resolving]
